FAERS Safety Report 4878806-4 (Version None)
Quarter: 2006Q1

REPORT INFORMATION
  Report Type: 
  Country: None (occurrence: None)
  Receive Date: 20060110
  Receipt Date: 20060110
  Transmission Date: 20060701
  Serious: Yes (Other)
  Sender: FDA-Public Use
  Company Number: None

PATIENT
  Age: 64 Year
  Sex: Female
  Weight: 68.3 kg

DRUGS (1)
  1. ERBITUX -CETUXIMAB-    2 MG/ML     IMCLONE SYSTEMBRISTOL MYERS SQUIBB [Suspect]
     Indication: PANCREATIC CARCINOMA
     Dosage: 400 MG/M2   ONCE  IV DRIP
     Route: 041
     Dates: start: 20060104, end: 20060104

REACTIONS (1)
  - DRUG HYPERSENSITIVITY [None]
